FAERS Safety Report 5791419-5 (Version None)
Quarter: 2008Q2

REPORT INFORMATION
  Report Type: 
  Country: None (occurrence: None)
  Receive Date: 20080626
  Receipt Date: 20080421
  Transmission Date: 20081010
  Serious: No
  Sender: FDA-Public Use
  Company Number: A0713187A

PATIENT

DRUGS (1)
  1. ALLI [Suspect]
     Indication: DRUG USE FOR UNKNOWN INDICATION
     Route: 048

REACTIONS (7)
  - BINGE EATING [None]
  - FLATULENCE [None]
  - MALAISE [None]
  - NASOPHARYNGITIS [None]
  - OBSESSIVE THOUGHTS [None]
  - RHINORRHOEA [None]
  - SENSORY DISTURBANCE [None]
